FAERS Safety Report 23107806 (Version 1)
Quarter: 2023Q4

REPORT INFORMATION
  Report Type: Spontaneous
  Country: US (occurrence: US)
  Receive Date: 20231026
  Receipt Date: 20231026
  Transmission Date: 20240109
  Serious: Yes (Hospitalization, Other)
  Sender: FDA-Public Use
  Company Number: US-MLMSERVICE-20231018-4608122-1

PATIENT
  Age: 50 Year
  Sex: Male

DRUGS (6)
  1. HYDROCORTISONE [Suspect]
     Active Substance: HYDROCORTISONE
  2. HYDROCORTISONE [Suspect]
     Active Substance: HYDROCORTISONE
  3. PREDNISONE [Suspect]
     Active Substance: PREDNISONE
  4. LIOTHYRONINE SODIUM [Concomitant]
     Active Substance: LIOTHYRONINE SODIUM
  5. DESMOPRESSIN [Concomitant]
     Active Substance: DESMOPRESSIN
  6. LEVOTHYROXINE [Concomitant]
     Active Substance: LEVOTHYROXINE

REACTIONS (3)
  - Perforation [Unknown]
  - Subcutaneous emphysema [Unknown]
  - Mucosal ulceration [Unknown]
